FAERS Safety Report 5064475-X (Version None)
Quarter: 2006Q3

REPORT INFORMATION
  Report Type: 
  Country: None (occurrence: None)
  Receive Date: 20060728
  Receipt Date: 20060517
  Transmission Date: 20061208
  Serious: Yes (Hospitalization)
  Sender: FDA-Public Use
  Company Number: DE-AMGEN-UK180118

PATIENT
  Sex: Female
  Weight: 82 kg

DRUGS (6)
  1. KINERET [Suspect]
     Indication: RHEUMATOID ARTHRITIS
     Route: 058
     Dates: start: 20020424, end: 20060201
  2. PREDNISOLONE [Suspect]
     Route: 048
     Dates: start: 19910101
  3. INSULIN [Concomitant]
  4. BELOC ZOK [Concomitant]
  5. NEXIUM [Concomitant]
  6. PROMETHAZINE HCL [Concomitant]

REACTIONS (5)
  - IMPAIRED HEALING [None]
  - METASTASES TO LYMPH NODES [None]
  - OSTEITIS DEFORMANS [None]
  - POSTOPERATIVE WOUND COMPLICATION [None]
  - THERAPY NON-RESPONDER [None]
